FAERS Safety Report 18970747 (Version 1)
Quarter: 2021Q1

REPORT INFORMATION
  Report Type: Spontaneous
  Country: US (occurrence: US)
  Receive Date: 20210304
  Receipt Date: 20210304
  Transmission Date: 20210420
  Serious: No
  Sender: FDA-Public Use
  Company Number: US-PFIZER INC-2021105949

PATIENT
  Age: 74 Year
  Sex: Female

DRUGS (5)
  1. LEVOXYL [Suspect]
     Active Substance: LEVOTHYROXINE SODIUM
     Indication: HYPOTHYROIDISM
     Dosage: 0.25 MG, DAILY (HALF OF THE TABLET IN THE MORNING AND HALF AT NIGHT)
     Route: 048
     Dates: start: 20201112
  2. MAGNESIUM MALATE. [Concomitant]
     Active Substance: MAGNESIUM MALATE
     Dosage: 1000 MG, UNK
     Dates: end: 20210122
  3. LEVOXYL [Suspect]
     Active Substance: LEVOTHYROXINE SODIUM
     Dosage: 0.25 MG, DAILY (HALF OF THE TABLET IN THE MORNING AND HALF AT NIGHT)
     Route: 060
     Dates: start: 202101
  4. MAGNESIUM MALATE. [Concomitant]
     Active Substance: MAGNESIUM MALATE
     Dosage: 200 MG, UNK
     Dates: end: 20210122
  5. TOZINAMERAN. [Suspect]
     Active Substance: TOZINAMERAN
     Indication: COVID-19 IMMUNISATION
     Dosage: SINGLE DOSE
     Dates: start: 20210120, end: 20210120

REACTIONS (2)
  - Palpitations [Not Recovered/Not Resolved]
  - Intentional product misuse [Unknown]

NARRATIVE: CASE EVENT DATE: 202101
